FAERS Safety Report 7721298-8 (Version None)
Quarter: 2011Q3

REPORT INFORMATION
  Report Type: 
  Country: None (occurrence: None)
  Receive Date: 20110831
  Receipt Date: 20110824
  Transmission Date: 20111222
  Serious: Yes (Other)
  Sender: FDA-Public Use
  Company Number: PHEH2011US02488

PATIENT
  Sex: Female

DRUGS (1)
  1. GILENYA [Suspect]
     Indication: MULTIPLE SCLEROSIS
     Dosage: 05 MG, DAILY
     Route: 048
     Dates: start: 20110712

REACTIONS (2)
  - SENSATION OF HEAVINESS [None]
  - HEMIPARESIS [None]
